FAERS Safety Report 4738010-7 (Version None)
Quarter: 2005Q3

REPORT INFORMATION
  Report Type: 
  Country: None (occurrence: None)
  Receive Date: 20050809
  Receipt Date: 20050524
  Transmission Date: 20060218
  Serious: Yes (Other)
  Sender: FDA-Public Use
  Company Number: 2005SE03065

PATIENT
  Age: 11647 Day
  Sex: Male

DRUGS (4)
  1. CANDESARTAN CILEXETIL [Suspect]
     Indication: DIABETES MELLITUS INSULIN-DEPENDENT
     Route: 048
     Dates: start: 20030219, end: 20050203
  2. CANDESARTAN CILEXETIL [Suspect]
     Route: 048
     Dates: start: 20050204
  3. HUMALOG [Concomitant]
     Dates: start: 20020101
  4. HUMULIN N [Concomitant]
     Dates: start: 19830301

REACTIONS (1)
  - HYPOTENSION [None]
